FAERS Safety Report 25947052 (Version 1)
Quarter: 2025Q4

REPORT INFORMATION
  Report Type: Spontaneous
  Country: US (occurrence: US)
  Receive Date: 20251022
  Receipt Date: 20251022
  Transmission Date: 20260117
  Serious: No
  Sender: ALEXION PHARMACEUTICALS
  Company Number: US-ASTRAZENECA-202509GLO028690US

PATIENT
  Age: 71 Year
  Sex: Female

DRUGS (2)
  1. LOKELMA [Suspect]
     Active Substance: SODIUM ZIRCONIUM CYCLOSILICATE
     Indication: Cushing^s syndrome
     Dosage: 150 MILLIGRAM, BID
     Dates: start: 202509
  2. LOKELMA [Suspect]
     Active Substance: SODIUM ZIRCONIUM CYCLOSILICATE
     Indication: Blood potassium increased

REACTIONS (5)
  - Laziness [Unknown]
  - Muscle spasms [Unknown]
  - Renal disorder [Unknown]
  - Fatigue [Unknown]
  - Headache [Unknown]
